FAERS Safety Report 25264947 (Version 1)
Quarter: 2025Q2

REPORT INFORMATION
  Report Type: Spontaneous
  Country: TW (occurrence: TW)
  Receive Date: 20250502
  Receipt Date: 20250502
  Transmission Date: 20250716
  Serious: Yes (Death, Other)
  Sender: ALEXION PHARMACEUTICALS
  Company Number: TW-ASTRAZENECA-202504GLO026257TW

PATIENT
  Age: 44 Year

DRUGS (2)
  1. GEFITINIB [Suspect]
     Active Substance: GEFITINIB
     Indication: Lung carcinoma cell type unspecified stage IV
     Route: 065
  2. OSIMERTINIB [Suspect]
     Active Substance: OSIMERTINIB
     Indication: Lung carcinoma cell type unspecified stage IV
     Route: 065

REACTIONS (3)
  - Sarcomatoid carcinoma [Fatal]
  - Malignant neoplasm progression [Fatal]
  - Metastases to spinal cord [Unknown]
